FAERS Safety Report 9964939 (Version 1)
Quarter: 2014Q1

REPORT INFORMATION
  Report Type: Other
  Country: US (occurrence: US)
  Receive Date: 20140305
  Receipt Date: 20140305
  Transmission Date: 20141002
  Serious: Yes (Death)
  Sender: FDA-Public Use
  Company Number: US-FRI-1000054832

PATIENT
  Age: 49 Year
  Sex: Female

DRUGS (4)
  1. CITALOPRAM [Suspect]
  2. MORPHINE [Suspect]
  3. UNKNOWN CYCLIC ANTIDEPRESSANT [Suspect]
  4. MIRTAZAPINE [Suspect]

REACTIONS (3)
  - Death [Fatal]
  - Cardiac arrest [None]
  - Respiratory arrest [None]
